FAERS Safety Report 9169889 (Version 1)
Quarter: 2013Q1

REPORT INFORMATION
  Report Type: Spontaneous
  Country: US (occurrence: None)
  Receive Date: 20130314
  Receipt Date: 20130314
  Transmission Date: 20140127
  Serious: No
  Sender: FDA-Public Use
  Company Number: None

PATIENT
  Age: 52 Year
  Sex: Female
  Weight: 61.24 kg

DRUGS (1)
  1. Z PACK [Suspect]
     Indication: SINUSITIS
     Dosage: 1 TABLET  1 DAILY  PO
     Route: 048
     Dates: start: 20111201, end: 20111205

REACTIONS (7)
  - Abdominal discomfort [None]
  - Nausea [None]
  - Weight decreased [None]
  - Hypophagia [None]
  - Insomnia [None]
  - Activities of daily living impaired [None]
  - Product quality issue [None]
